FAERS Safety Report 8986320 (Version 3)
Quarter: 2013Q2

REPORT INFORMATION
  Report Type: Spontaneous
  Country: DE (occurrence: None)
  Receive Date: 20121217
  Receipt Date: 20130423
  Transmission Date: 20140414
  Serious: Yes (Other)
  Sender: FDA-Public Use
  Company Number: POMP-1002652

PATIENT
  Sex: Male
  Weight: 2.2 kg

DRUGS (1)
  1. MYOZYME [Suspect]
     Indication: GLYCOGEN STORAGE DISEASE TYPE II
     Route: 064
     Dates: start: 20090520

REACTIONS (11)
  - Respiratory disorder neonatal [None]
  - Congenital infection [None]
  - Hyponatraemia [None]
  - Low birth weight baby [None]
  - Maternal drugs affecting foetus [None]
  - Lung infection [None]
  - Pneumothorax [None]
  - Twin pregnancy [None]
  - Caesarean section [None]
  - Premature baby [None]
  - Maternal drugs affecting foetus [None]
